FAERS Safety Report 5173836-X (Version None)
Quarter: 2006Q4

REPORT INFORMATION
  Report Type: 
  Country: None (occurrence: None)
  Receive Date: 20061208
  Receipt Date: 20061208
  Transmission Date: 20070319
  Serious: Yes (Hospitalization)
  Sender: FDA-Public Use
  Company Number: None

PATIENT
  Age: 42 Year
  Sex: Female
  Weight: 54.6 kg

DRUGS (24)
  1. CETUXIMAB (CETUXIMAB) [Suspect]
     Indication: CERVIX CARCINOMA
     Dosage: SEE IMAGE
     Route: 042
     Dates: start: 20060907, end: 20060907
  2. CETUXIMAB (CETUXIMAB) [Suspect]
     Indication: CERVIX CARCINOMA
     Dosage: SEE IMAGE
     Route: 042
     Dates: start: 20060914, end: 20060921
  3. CETUXIMAB (CETUXIMAB) [Suspect]
     Indication: CERVIX CARCINOMA
     Dosage: SEE IMAGE
     Route: 042
     Dates: start: 20060928, end: 20061005
  4. CETUXIMAB (CETUXIMAB) [Suspect]
     Indication: CERVIX CARCINOMA
     Dosage: SEE IMAGE
     Route: 042
     Dates: start: 20061019, end: 20061019
  5. CISPLATIN [Suspect]
     Indication: CERVIX CARCINOMA
     Dosage: I.V.
     Route: 042
     Dates: start: 20060928, end: 20060928
  6. CISPLATIN [Suspect]
     Indication: CERVIX CARCINOMA
     Dosage: I.V.
     Route: 042
     Dates: start: 20061019, end: 20061019
  7. RADIATION THERAPY [Suspect]
     Indication: CERVIX CARCINOMA
     Dates: start: 20061019, end: 20061019
  8. RADIATION THERAPY [Suspect]
     Indication: CERVIX CARCINOMA
     Dates: start: 20060928
  9. OXYCONTIN [Concomitant]
  10. OXYCODONE HCL [Concomitant]
  11. GABAPENTIN [Concomitant]
  12. PROMETHAZINE HCL [Concomitant]
  13. TEMAZEPAM [Concomitant]
  14. METOPROLOL TARTRATE [Concomitant]
  15. GLYCERIN SUPPOSITORY (GLYCEROL) [Concomitant]
  16. SENNA (SENNA ALEXANDRINA) [Concomitant]
  17. FAMOTIDINE [Concomitant]
  18. POLYETHYLENE GLYCOL (MACROGOL) [Concomitant]
  19. DOXYCYCLINE [Concomitant]
  20. CLINDAMYCIN (CLINDAMYCIN) [Concomitant]
  21. LORAZEPAM [Concomitant]
  22. DIPHENOXYLATE + ATROPINE (DIPHENOXYLATE) [Concomitant]
  23. TRYPSIN/PERU BALSAM/ CASTOR OIL [Concomitant]
  24. ALUMINUM/MAGNESIUM HYDROXIDE/NYSTATIN/DIPHENHYDRAMINE [Concomitant]

REACTIONS (2)
  - DIARRHOEA [None]
  - ORAL INTAKE REDUCED [None]
